FAERS Safety Report 4499591-4 (Version None)
Quarter: 2004Q4

REPORT INFORMATION
  Report Type: 
  Country: None (occurrence: None)
  Receive Date: 20040928
  Receipt Date: 20040818
  Transmission Date: 20050328
  Serious: No
  Sender: FDA-Public Use
  Company Number: 04P-163-0270893-00

PATIENT
  Age: 77 Year
  Sex: Female
  Weight: 55.7924 kg

DRUGS (14)
  1. HUMIRA [Suspect]
     Indication: RHEUMATOID ARTHRITIS
     Dosage: 40 MG, 1 IN 2 WK, SUBCUTANEOUS
     Route: 058
     Dates: start: 20040717
  2. PREDNISONE [Concomitant]
  3. METHOTREXATE SODIUM [Concomitant]
  4. FOLIC ACID [Concomitant]
  5. AMLODIPINE BESYLATE [Concomitant]
  6. POTASSIUM [Concomitant]
  7. HYDROCODONE [Concomitant]
  8. OXYBUTYNIN HYDROCHLORIDE [Concomitant]
  9. LORAZADINE [Concomitant]
  10. ESOMEPRAZOLE [Concomitant]
  11. I CAPS [Concomitant]
  12. TUMS XL [Concomitant]
  13. GELATIN CAPSULE [Concomitant]
  14. ASCORBIC ACID [Concomitant]

REACTIONS (1)
  - DRUG INEFFECTIVE [None]
